FAERS Safety Report 5011152-7 (Version None)
Quarter: 2006Q2

REPORT INFORMATION
  Report Type: 
  Country: None (occurrence: None)
  Receive Date: 20060523
  Receipt Date: 20060511
  Transmission Date: 20061013
  Serious: Yes (Hospitalization)
  Sender: FDA-Public Use
  Company Number: HQWYE334615MAR06

PATIENT
  Age: 57 Year
  Sex: Male

DRUGS (14)
  1. RAPAMUNE [Suspect]
     Indication: PROPHYLAXIS AGAINST TRANSPLANT REJECTION
     Dosage: 2 MG 1X PER 1 DAY ORAL
     Route: 048
     Dates: start: 20050904, end: 20060508
  2. CYCLOSPORINE [Concomitant]
  3. .................. [Concomitant]
  4. ..................... [Concomitant]
  5. .................. [Concomitant]
  6. ................. [Concomitant]
  7. PREDNISONE TAB [Concomitant]
  8. .................. [Concomitant]
  9. WARFARIN (WARFARIN) [Concomitant]
  10. ................... [Concomitant]
  11. ENOXAPARIN SODIUM [Concomitant]
  12. .................. [Concomitant]
  13. ATENOLOL [Concomitant]
  14. SIMVASTATIN [Concomitant]

REACTIONS (8)
  - CHEST PAIN [None]
  - CHRONIC ALLOGRAFT NEPHROPATHY [None]
  - DEEP VEIN THROMBOSIS [None]
  - HAEMATOCRIT DECREASED [None]
  - HAEMOGLOBIN DECREASED [None]
  - LYMPHOCELE [None]
  - RENAL IMPAIRMENT [None]
  - WHITE BLOOD CELL COUNT INCREASED [None]
